FAERS Safety Report 7905695-3 (Version None)
Quarter: 2011Q4

REPORT INFORMATION
  Report Type: 
  Country: None (occurrence: None)
  Receive Date: 20111110
  Receipt Date: 20111107
  Transmission Date: 20120403
  Serious: No
  Sender: FDA-Public Use
  Company Number: US-BIOGENIDEC-2011BI042358

PATIENT
  Sex: Female

DRUGS (8)
  1. AVONEX [Suspect]
     Indication: MULTIPLE SCLEROSIS
     Route: 030
     Dates: start: 20060101
  2. AMITRIPTYLINE HCL [Concomitant]
     Indication: DEPRESSION
  3. IBUPROFEN [Concomitant]
     Indication: PREMEDICATION
  4. TRAZODONE HYDROCHLORIDE [Concomitant]
     Indication: SLEEP DISORDER
  5. LAMICTAL [Concomitant]
     Indication: PRODUCT USED FOR UNKNOWN INDICATION
  6. AMITRIPTYLINE HCL [Concomitant]
     Indication: SLEEP DISORDER
  7. PREDNISONE [Concomitant]
     Indication: PREMEDICATION
  8. AMITRIPTYLINE HCL [Concomitant]
     Indication: HEADACHE

REACTIONS (6)
  - CHEST PAIN [None]
  - SWELLING [None]
  - HYPERSENSITIVITY [None]
  - INFLUENZA LIKE ILLNESS [None]
  - PAIN [None]
  - ANXIETY [None]
